FAERS Safety Report 20616666 (Version 2)
Quarter: 2022Q4

REPORT INFORMATION
  Report Type: Spontaneous
  Country: US (occurrence: US)
  Receive Date: 20220321
  Receipt Date: 20221017
  Transmission Date: 20230113
  Serious: Yes (Other)
  Sender: FDA-Public Use
  Company Number: US-ELI_LILLY_AND_COMPANY-US202203005111

PATIENT
  Sex: Female

DRUGS (2)
  1. RETEVMO [Suspect]
     Active Substance: SELPERCATINIB
     Indication: Thyroid cancer
     Dosage: UNK UNK, UNKNOWN
     Route: 048
  2. PRALSETINIB [Concomitant]
     Active Substance: PRALSETINIB
     Indication: Product used for unknown indication
     Dosage: UNK, UNKNOWN
     Route: 065

REACTIONS (3)
  - Uveitis [Unknown]
  - Blindness [Recovered/Resolved]
  - Dry mouth [Unknown]
